FAERS Safety Report 9652458 (Version 1)
Quarter: 2013Q4

REPORT INFORMATION
  Report Type: Spontaneous
  Country: US (occurrence: None)
  Receive Date: 20131025
  Receipt Date: 20131025
  Transmission Date: 20140711
  Serious: Yes (Other)
  Sender: FDA-Public Use
  Company Number: SYM-2013-11872

PATIENT
  Age: 85 Year
  Sex: Female

DRUGS (1)
  1. XENAZINE (TETRABENAZINE) [Suspect]
     Indication: HUNTINGTON^S DISEASE
     Route: 048
     Dates: start: 20130920

REACTIONS (6)
  - Blood pressure increased [None]
  - Feeling hot [None]
  - Anxiety [None]
  - Agitation [None]
  - Staphylococcal infection [None]
  - Wrong technique in drug usage process [None]
